FAERS Safety Report 8492234 (Version 3)
Quarter: 2013Q2

REPORT INFORMATION
  Report Type: Spontaneous
  Country: CA (occurrence: CA)
  Receive Date: 20120403
  Receipt Date: 20130502
  Transmission Date: 20140414
  Serious: Yes (Other)
  Sender: FDA-Public Use
  Company Number: CA-JNJFOC-20120312604

PATIENT
  Age: 50 Year
  Sex: Male
  Weight: 108 kg

DRUGS (13)
  1. REMICADE [Suspect]
     Indication: PSORIATIC ARTHROPATHY
     Route: 042
     Dates: start: 20000210
  2. REMICADE [Suspect]
     Indication: PSORIATIC ARTHROPATHY
     Route: 042
     Dates: start: 20120403
  3. REMICADE [Suspect]
     Indication: ANKYLOSING SPONDYLITIS
     Route: 042
     Dates: start: 20000210
  4. REMICADE [Suspect]
     Indication: ANKYLOSING SPONDYLITIS
     Route: 042
     Dates: start: 20120403
  5. OXYCONTIN [Concomitant]
     Dosage: 4-8 TABLETS
     Route: 048
  6. TERAZOSIN [Concomitant]
     Route: 048
  7. METHOTREXATE [Concomitant]
     Route: 048
  8. COZAAR [Concomitant]
     Route: 048
  9. ADALAT [Concomitant]
     Route: 048
  10. METFORMIN [Concomitant]
     Route: 048
  11. PANTOLOC [Concomitant]
     Route: 048
  12. FOLIC ACID [Concomitant]
     Route: 048
  13. SENOKOT [Concomitant]
     Route: 048

REACTIONS (4)
  - Pulmonary embolism [Unknown]
  - Infection [Unknown]
  - Local swelling [Recovering/Resolving]
  - Cellulitis [Recovering/Resolving]
